FAERS Safety Report 20517835 (Version 1)
Quarter: 2022Q1

REPORT INFORMATION
  Report Type: Spontaneous
  Country: US (occurrence: None)
  Receive Date: 20220224
  Receipt Date: 20220224
  Transmission Date: 20220424
  Serious: No
  Sender: FDA-Public Use
  Company Number: None

PATIENT
  Age: 39 Year
  Sex: Female

DRUGS (1)
  1. EVUSHELD [Suspect]
     Active Substance: CILGAVIMAB\TIXAGEVIMAB
     Indication: Allogenic stem cell transplantation
     Route: 030
     Dates: start: 20220224, end: 20220224

REACTIONS (2)
  - Chest discomfort [None]
  - Emotional distress [None]

NARRATIVE: CASE EVENT DATE: 20220224
